FAERS Safety Report 24297053 (Version 2)
Quarter: 2025Q1

REPORT INFORMATION
  Report Type: Spontaneous
  Country: US (occurrence: US)
  Receive Date: 20240909
  Receipt Date: 20250224
  Transmission Date: 20250409
  Serious: No
  Sender: ROCHE
  Company Number: US-ROCHE-10000069014

PATIENT
  Sex: Female

DRUGS (6)
  1. HERCEPTIN [Suspect]
     Active Substance: TRASTUZUMAB
     Indication: Product used for unknown indication
     Route: 065
  2. LORAZEPAM [Concomitant]
     Active Substance: LORAZEPAM
  3. XELODA [Concomitant]
     Active Substance: CAPECITABINE
  4. EUCERIN [Concomitant]
     Active Substance: ENSULIZOLE\EUCERIN\OCTINOXATE\OCTISALATE\TITANIUM DIOXIDE\ZINC OXIDE
  5. POTASSIUM [Concomitant]
     Active Substance: POTASSIUM
  6. IMODIUM [Concomitant]
     Active Substance: LOPERAMIDE HYDROCHLORIDE

REACTIONS (1)
  - Hot flush [Unknown]
